FAERS Safety Report 5495728-9 (Version None)
Quarter: 2007Q4

REPORT INFORMATION
  Report Type: 
  Country: None (occurrence: None)
  Receive Date: 20071025
  Receipt Date: 20061121
  Transmission Date: 20080405
  Serious: No
  Sender: FDA-Public Use
  Company Number: A0623078A

PATIENT
  Age: 53 Year
  Sex: Female

DRUGS (11)
  1. ADVAIR DISKUS 100/50 [Suspect]
     Indication: ASTHMA
     Dosage: 1PUFF TWICE PER DAY
     Route: 055
     Dates: start: 20051201
  2. SINGULAIR [Concomitant]
  3. PRILOSEC [Concomitant]
  4. MYCELEX [Concomitant]
  5. PREDNISONE [Concomitant]
  6. LEVAQUIN [Concomitant]
  7. TYLENOL (CAPLET) [Concomitant]
  8. CIPROFLOXACIN [Concomitant]
  9. ERYTHROMYCIN [Concomitant]
  10. MYTUSSIN [Concomitant]
  11. TESSALON [Concomitant]

REACTIONS (7)
  - CANDIDIASIS [None]
  - COUGH [None]
  - DRUG INEFFECTIVE [None]
  - DYSPNOEA [None]
  - INFECTION [None]
  - MUCOUS MEMBRANE DISORDER [None]
  - PHARMACEUTICAL PRODUCT COMPLAINT [None]
